FAERS Safety Report 9153820 (Version 1)
Quarter: 2013Q1

REPORT INFORMATION
  Report Type: Spontaneous
  Country: US (occurrence: None)
  Receive Date: 20130308
  Receipt Date: 20130308
  Transmission Date: 20140127
  Serious: Yes (Death)
  Sender: FDA-Public Use
  Company Number: None

PATIENT
  Age: 82 Year
  Sex: Male
  Weight: 66.7 kg

DRUGS (1)
  1. PRADAXA [Suspect]
     Dosage: 1 TAB (PER FAMILY) BID PO
     Route: 048

REACTIONS (1)
  - Haemorrhage intracranial [None]
